FAERS Safety Report 12426347 (Version 1)
Quarter: 2016Q2

REPORT INFORMATION
  Report Type: Spontaneous
  Country: US (occurrence: US)
  Receive Date: 20160601
  Receipt Date: 20160601
  Transmission Date: 20160815
  Serious: No
  Sender: FDA-Public Use
  Company Number: US-GLAXOSMITHKLINE-US2016069517

PATIENT

DRUGS (4)
  1. FOCALIN [Concomitant]
     Active Substance: DEXMETHYLPHENIDATE HYDROCHLORIDE
  2. JUNEL [Concomitant]
     Active Substance: ETHINYL ESTRADIOL\NORETHINDRONE ACETATE
  3. LAMICTAL [Suspect]
     Active Substance: LAMOTRIGINE
     Indication: PRODUCT USED FOR UNKNOWN INDICATION
     Dosage: 25 MG, UNK
  4. KEPPRA [Concomitant]
     Active Substance: LEVETIRACETAM

REACTIONS (7)
  - Drug clearance decreased [Unknown]
  - Pain in extremity [Not Recovered/Not Resolved]
  - Musculoskeletal disorder [Unknown]
  - Dry eye [Not Recovered/Not Resolved]
  - Arthralgia [Not Recovered/Not Resolved]
  - Spondyloarthropathy [Unknown]
  - Back pain [Not Recovered/Not Resolved]

NARRATIVE: CASE EVENT DATE: 201604
